FAERS Safety Report 22848119 (Version 2)
Quarter: 2024Q3

REPORT INFORMATION
  Report Type: Report from Study
  Country: GB (occurrence: GB)
  Receive Date: 20230822
  Receipt Date: 20240910
  Transmission Date: 20241017
  Serious: Yes (Other)
  Sender: ROCHE
  Company Number: GB-ROCHE-3406946

PATIENT

DRUGS (1)
  1. MABTHERA [Suspect]
     Active Substance: RITUXIMAB
     Indication: Anti-neutrophil cytoplasmic antibody positive vasculitis
     Route: 065

REACTIONS (25)
  - Infection [Unknown]
  - Hypogammaglobulinaemia [Unknown]
  - Cardiovascular disorder [Unknown]
  - Renal failure [Unknown]
  - Progressive multifocal leukoencephalopathy [Unknown]
  - Lower respiratory tract infection [Unknown]
  - Sepsis [Unknown]
  - Venous thrombosis [Unknown]
  - Myocardial infarction [Unknown]
  - Haemorrhage [Unknown]
  - Coronary artery disease [Unknown]
  - Neutropenia [Unknown]
  - Thrombocytopenia [Unknown]
  - Skin cancer [Unknown]
  - Pneumocystis jirovecii pneumonia [Unknown]
  - Aspergillus infection [Unknown]
  - Infusion related reaction [Unknown]
  - Anal cancer [Unknown]
  - Bowen^s disease [Unknown]
  - Breast cancer [Unknown]
  - Ependymoma [Unknown]
  - Malignant melanoma [Unknown]
  - Pleomorphic liposarcoma [Unknown]
  - Prostate cancer [Unknown]
  - Squamous cell carcinoma [Unknown]
